FAERS Safety Report 17007208 (Version 1)
Quarter: 2019Q4

REPORT INFORMATION
  Report Type: Spontaneous
  Country: JP (occurrence: JP)
  Receive Date: 20191107
  Receipt Date: 20191107
  Transmission Date: 20200122
  Serious: Yes (Death, Hospitalization, Other)
  Sender: FDA-Public Use
  Company Number: NVSJ2019JP001972

PATIENT
  Age: 67 Year
  Sex: Male

DRUGS (1)
  1. NEORAL [Suspect]
     Active Substance: CYCLOSPORINE
     Indication: APLASTIC ANAEMIA
     Dosage: UNK
     Route: 065

REACTIONS (9)
  - Hypopnoea [Fatal]
  - Leukaemia [Unknown]
  - Cerebral haemorrhage [Unknown]
  - Purpura [Unknown]
  - Renal infarct [Unknown]
  - Peripheral artery thrombosis [Unknown]
  - Seizure [Unknown]
  - Haemoglobin decreased [Unknown]
  - Platelet count decreased [Unknown]
